FAERS Safety Report 11848564 (Version 1)
Quarter: 2015Q4

REPORT INFORMATION
  Report Type: Report from Study
  Country: PE (occurrence: PE)
  Receive Date: 20151218
  Receipt Date: 20151218
  Transmission Date: 20160305
  Serious: Yes (Other)
  Sender: FDA-Public Use
  Company Number: PE-ROCHE-1203233

PATIENT
  Sex: Female

DRUGS (2)
  1. CAPECITABINE. [Suspect]
     Active Substance: CAPECITABINE
     Indication: BREAST CANCER METASTATIC
     Dosage: IN 2 DOSES ON DAYS 1 TO 14
     Route: 048
  2. LAPATINIB [Suspect]
     Active Substance: LAPATINIB
     Indication: BREAST CANCER METASTATIC
     Dosage: EVERY 3-WEEK CYCLES
     Route: 048

REACTIONS (17)
  - Alanine aminotransferase increased [Unknown]
  - Nausea [Unknown]
  - Thrombocytopenia [Unknown]
  - Aspartate aminotransferase increased [Unknown]
  - Anaemia [Unknown]
  - Asthenia [Unknown]
  - Abdominal pain [Unknown]
  - Diarrhoea [Unknown]
  - Mucosal inflammation [Unknown]
  - Deep vein thrombosis [Unknown]
  - Palmar-plantar erythrodysaesthesia syndrome [Unknown]
  - Blood bilirubin increased [Unknown]
  - Rash [Unknown]
  - Paronychia [Unknown]
  - Febrile neutropenia [Unknown]
  - Vomiting [Unknown]
  - Sepsis [Unknown]
